FAERS Safety Report 6731689-X (Version None)
Quarter: 2010Q2

REPORT INFORMATION
  Report Type: 
  Country: None (occurrence: None)
  Receive Date: 20100519
  Receipt Date: 20100507
  Transmission Date: 20101027
  Serious: Yes (Hospitalization, Other)
  Sender: FDA-Public Use
  Company Number: FR-WYE-H15080310

PATIENT
  Age: 85 Year
  Sex: Female

DRUGS (12)
  1. CORDARONE [Suspect]
     Indication: ARRHYTHMIA
     Route: 048
     Dates: start: 20090101
  2. PREVISCAN [Concomitant]
     Dosage: DOSE AND FREQUENCY NOT SPECIFIED
     Route: 065
  3. DIFFU K [Concomitant]
  4. IRBESARTAN [Concomitant]
     Dosage: DOSE AND FREQUENCY NOT SPECIFIED
     Route: 065
  5. DIGOXIN [Interacting]
     Indication: ARRHYTHMIA
     Dosage: 0.25 MG (FREQUENCY NOT SPECIFIED)
     Route: 048
     Dates: start: 20100401, end: 20100414
  6. SINGULAIR [Concomitant]
     Dosage: DOSE AND FREQUENCY NOT SPECIFIED
     Route: 065
  7. FUROSEMIDE [Concomitant]
     Dosage: DOSE AND FREQUENCY NOT SPECIFIED
     Route: 065
  8. LORAZEPAM [Concomitant]
     Dosage: DOSE AND FREQUENCY NOT SPECIFIED
     Route: 065
  9. DICETEL [Concomitant]
     Dosage: DOSE AND FREQUENCY NOT SPECIFIED
     Route: 065
     Dates: start: 20100413
  10. RULID [Interacting]
     Indication: SPLENECTOMY
     Route: 048
  11. BACTRIM [Concomitant]
     Dosage: DOSE AND FREQUENCY NOT SPECIFIED
     Route: 065
     Dates: start: 20100413
  12. CARDENSIEL [Concomitant]
     Dosage: DOSE AND FREQUENCY NOT SPECIFIED
     Route: 065

REACTIONS (3)
  - DRUG INTERACTION [None]
  - RENAL FAILURE [None]
  - THYROID DISORDER [None]
